FAERS Safety Report 24640917 (Version 1)
Quarter: 2024Q4

REPORT INFORMATION
  Report Type: Report from Study
  Country: ES (occurrence: ES)
  Receive Date: 20241120
  Receipt Date: 20241120
  Transmission Date: 20250115
  Serious: Yes (Hospitalization)
  Sender: Y-MABS THERAPEUTICS
  Company Number: ES-Y-MABS THERAPEUTICS, INC.-COM2021-ES-000415

PATIENT

DRUGS (8)
  1. NAXITAMAB [Suspect]
     Active Substance: NAXITAMAB
     Indication: Neuroblastoma
     Dosage: CYCLE 1, DOSE 1, 2.5 MG/KG
     Route: 042
     Dates: start: 20210414, end: 20210414
  2. NAXITAMAB [Suspect]
     Active Substance: NAXITAMAB
     Dosage: CYCLE 2, DOSE 1, 2.5 MG/KG
     Route: 042
     Dates: start: 20210511, end: 20210511
  3. GRANULOCYTE-MACROPHAGE COLONY-STIMULATING FACTOR [Suspect]
     Active Substance: GRANULOCYTE-MACROPHAGE COLONY-STIMULATING FACTOR
     Indication: Neuroblastoma
     Dosage: CYCLE 1, DOSE 1, 2.5 MICROGRAM PER CUBIC METRE
     Route: 058
     Dates: start: 20210418, end: 20210418
  4. GRANULOCYTE-MACROPHAGE COLONY-STIMULATING FACTOR [Suspect]
     Active Substance: GRANULOCYTE-MACROPHAGE COLONY-STIMULATING FACTOR
     Dosage: CYCLE 1, DOSE 5, 250 MICROGRAM PER CUBIC METRE
     Route: 058
     Dates: start: 20210422, end: 20210422
  5. IRINOTECAN [Concomitant]
     Active Substance: IRINOTECAN
     Indication: Neuroblastoma
     Dosage: 77 MG, QD
     Route: 042
     Dates: start: 20210510, end: 20210513
  6. TEMOZOLOMIDE [Concomitant]
     Active Substance: TEMOZOLOMIDE
     Indication: Neuroblastoma
     Dosage: 200 MG, QD
     Route: 048
     Dates: start: 20210510, end: 20210513
  7. CIPROFLOXACIN [Concomitant]
     Active Substance: CIPROFLOXACIN
     Indication: Product used for unknown indication
  8. CEFIXIME [Concomitant]
     Active Substance: CEFIXIME
     Indication: Product used for unknown indication

REACTIONS (1)
  - Vomiting [Recovered/Resolved]

NARRATIVE: CASE EVENT DATE: 20210511
